FAERS Safety Report 16813747 (Version 2)
Quarter: 2019Q3

REPORT INFORMATION
  Report Type: Report from Study
  Country: US (occurrence: US)
  Receive Date: 20190917
  Receipt Date: 20190923
  Transmission Date: 20191005
  Serious: No
  Sender: FDA-Public Use
  Company Number: PHEH2019US038024

PATIENT
  Sex: Female

DRUGS (4)
  1. MAYZENT [Suspect]
     Active Substance: SIPONIMOD
     Indication: SECONDARY PROGRESSIVE MULTIPLE SCLEROSIS
  2. MAYZENT [Suspect]
     Active Substance: SIPONIMOD
     Indication: RELAPSING-REMITTING MULTIPLE SCLEROSIS
  3. MAYZENT [Suspect]
     Active Substance: SIPONIMOD
     Indication: MULTIPLE SCLEROSIS RELAPSE
     Dosage: 0.5 DF (2 MG), QD
     Route: 048
     Dates: start: 20190906, end: 20190914
  4. MAYZENT [Suspect]
     Active Substance: SIPONIMOD
     Indication: CLINICALLY ISOLATED SYNDROME

REACTIONS (4)
  - Headache [Not Recovered/Not Resolved]
  - Dizziness [Unknown]
  - Wrong technique in product usage process [Unknown]
  - Nausea [Not Recovered/Not Resolved]
